FAERS Safety Report 15714363 (Version 2)
Quarter: 2019Q1

REPORT INFORMATION
  Report Type: Spontaneous
  Country: US (occurrence: US)
  Receive Date: 20181212
  Receipt Date: 20190215
  Transmission Date: 20190417
  Serious: Yes (Other)
  Sender: FDA-Public Use
  Company Number: US-SA-2018SA335947

PATIENT
  Age: 67 Year
  Sex: Female
  Weight: 81.2 kg

DRUGS (12)
  1. HERCEPTIN [Concomitant]
     Active Substance: TRASTUZUMAB
     Dosage: UNK MG, Q3W
  2. CALCIUM CARBONATE. [Concomitant]
     Active Substance: CALCIUM CARBONATE
  3. VITAMIN D3 [Concomitant]
     Active Substance: CHOLECALCIFEROL
  4. RITUXAN [Concomitant]
     Active Substance: RITUXIMAB
  5. CELEBREX [Concomitant]
     Active Substance: CELECOXIB
  6. POTASSIUM [Concomitant]
     Active Substance: POTASSIUM
  7. LOPERAMIDE [Concomitant]
     Active Substance: LOPERAMIDE
  8. ARIMIDEX [Concomitant]
     Active Substance: ANASTROZOLE
  9. TAXOTERE [Suspect]
     Active Substance: DOCETAXEL
     Indication: BREAST CANCER
     Dosage: UNK UNK, Q3W
     Route: 042
     Dates: start: 20120119, end: 20120119
  10. PARAPLATIN [Concomitant]
     Active Substance: CARBOPLATIN
  11. TAXOTERE [Suspect]
     Active Substance: DOCETAXEL
     Dosage: 110MG, REDUCED TO 60 MG
     Route: 042
     Dates: start: 20120412, end: 20120412
  12. AMBIEN [Concomitant]
     Active Substance: ZOLPIDEM TARTRATE

REACTIONS (1)
  - Alopecia [Recovering/Resolving]

NARRATIVE: CASE EVENT DATE: 2012
